FAERS Safety Report 10244745 (Version 1)
Quarter: 2014Q2

REPORT INFORMATION
  Report Type: Spontaneous
  Country: US (occurrence: US)
  Receive Date: 20140618
  Receipt Date: 20140618
  Transmission Date: 20141212
  Serious: No
  Sender: FDA-Public Use
  Company Number: US-PFIZER INC-2014164434

PATIENT
  Age: 53 Year
  Sex: Male
  Weight: 126.9 kg

DRUGS (5)
  1. CHANTIX [Suspect]
     Indication: SMOKING CESSATION THERAPY
     Dosage: 0.5 MG, DAILY
     Dates: start: 201406
  2. TIZANIDINE [Concomitant]
     Indication: MUSCLE RELAXANT THERAPY
     Dosage: 5 MG, UNK
  3. TIZANIDINE [Concomitant]
     Indication: BACK DISORDER
  4. TRIAMTERENE [Concomitant]
     Indication: DIURETIC THERAPY
     Dosage: 7.5 MG, UNK
  5. WARFARIN [Concomitant]
     Dosage: UNK

REACTIONS (1)
  - Anxiety [Unknown]
